FAERS Safety Report 8770608 (Version 3)
Quarter: 2012Q4

REPORT INFORMATION
  Report Type: Report from Study
  Country: US (occurrence: US)
  Receive Date: 20120906
  Receipt Date: 20121101
  Transmission Date: 20130627
  Serious: Yes (Hospitalization)
  Sender: FDA-Public Use
  Company Number: US-ROCHE-1116378

PATIENT
  Age: 81 Year
  Sex: Male
  Weight: 67.7 kg

DRUGS (5)
  1. BEVACIZUMAB [Suspect]
     Indication: COLORECTAL CANCER METASTATIC
     Dosage: last dose prior to event: 20/Aug/2012, dose held
     Route: 050
     Dates: start: 20120730
  2. IRINOTECAN [Suspect]
     Indication: COLORECTAL CANCER METASTATIC
     Dosage: last dose prior to event: 20/Aug/2012, dose held
     Route: 050
     Dates: start: 20120730
  3. 5-FU [Suspect]
     Indication: COLORECTAL CANCER METASTATIC
     Dosage: last dose prior to event: 20/Aug/2012, bolus, dose held
     Route: 050
     Dates: start: 20120730
  4. 5-FU [Suspect]
     Indication: COLORECTAL CANCER METASTATIC
     Dosage: last dose prior to event: 20/Aug/2012, dose held
     Route: 050
     Dates: start: 20120730
  5. LEUCOVORIN [Suspect]
     Indication: COLORECTAL CANCER METASTATIC
     Dosage: last dose prior to event: 20/Aug/2012
     Route: 050
     Dates: start: 20120730

REACTIONS (1)
  - Muscular weakness [Recovered/Resolved]
